FAERS Safety Report 25392577 (Version 4)
Quarter: 2025Q3

REPORT INFORMATION
  Report Type: Report from Study
  Country: AU (occurrence: AU)
  Receive Date: 20250603
  Receipt Date: 20250716
  Transmission Date: 20251021
  Serious: Yes (Other)
  Sender: GILEAD
  Company Number: AU-GILEAD-2025-0715656

PATIENT
  Sex: Male

DRUGS (1)
  1. LENACAPAVIR [Suspect]
     Active Substance: LENACAPAVIR
     Indication: HIV infection
     Route: 065

REACTIONS (2)
  - Hypertensive crisis [Unknown]
  - Injection site reaction [Unknown]
